FAERS Safety Report 11080184 (Version 1)
Quarter: 2015Q2

REPORT INFORMATION
  Report Type: Report from Study
  Country: US (occurrence: US)
  Receive Date: 20150430
  Receipt Date: 20150430
  Transmission Date: 20150821
  Serious: Yes (Hospitalization)
  Sender: FDA-Public Use
  Company Number: US-EISAI MEDICAL RESEARCH-EC-2015-005058

PATIENT
  Age: 83 Year
  Sex: Female
  Weight: 75.2 kg

DRUGS (3)
  1. TYLENOL [Concomitant]
     Active Substance: ACETAMINOPHEN
  2. LENVIMA [Suspect]
     Active Substance: LENVATINIB
     Indication: THYROID CANCER
     Route: 048
     Dates: start: 20150310
  3. ECOTRIN [Concomitant]
     Active Substance: ASPIRIN

REACTIONS (15)
  - Chills [Unknown]
  - Fatigue [Unknown]
  - Diarrhoea [Unknown]
  - Constipation [Unknown]
  - Oropharyngeal pain [Unknown]
  - Dyspnoea [Unknown]
  - Diplopia [Unknown]
  - Haematochezia [Unknown]
  - Wound drainage [Unknown]
  - Nausea [Unknown]
  - Stomatitis [Unknown]
  - Abdominal discomfort [Unknown]
  - Blood pressure increased [Unknown]
  - Hypoaesthesia [Unknown]
  - Weight decreased [Unknown]

NARRATIVE: CASE EVENT DATE: 201503
